FAERS Safety Report 21188906 (Version 3)
Quarter: 2022Q3

REPORT INFORMATION
  Report Type: Spontaneous
  Country: IN (occurrence: IN)
  Receive Date: 20220809
  Receipt Date: 20220817
  Transmission Date: 20221026
  Serious: No
  Sender: FDA-Public Use
  Company Number: IN-LUPIN PHARMACEUTICALS INC.-2022-10098

PATIENT

DRUGS (1)
  1. POLYETHYLENE GLYCOL 3350\POTASSIUM CHLORIDE\SODIUM BICARBONATE\SODIUM [Suspect]
     Active Substance: POLYETHYLENE GLYCOL 3350\POTASSIUM CHLORIDE\SODIUM BICARBONATE\SODIUM CHLORIDE
     Indication: Constipation
     Dosage: 10 MILLILITER, BID (IN MORNING AND EVENING UNDILUTED)
     Route: 048
     Dates: start: 202207, end: 20220802

REACTIONS (3)
  - Abdominal distension [Not Recovered/Not Resolved]
  - Prescription drug used without a prescription [Unknown]
  - Wrong technique in product usage process [Unknown]
